FAERS Safety Report 6252655-7 (Version None)
Quarter: 2009Q2

REPORT INFORMATION
  Report Type: 
  Country: None (occurrence: None)
  Receive Date: 20090629
  Receipt Date: 20090629
  Transmission Date: 20091009
  Serious: Yes (Hospitalization)
  Sender: FDA-Public Use
  Company Number: None

PATIENT
  Sex: Female
  Weight: 66.5 kg

DRUGS (2)
  1. DOXORUBICIN HCL [Suspect]
     Dosage: 65 MG
  2. GEMCITABINE HCL [Suspect]
     Dosage: 65 MG

REACTIONS (8)
  - BACTERIAL INFECTION [None]
  - CATHETER SITE PAIN [None]
  - DIARRHOEA [None]
  - HYPOTENSION [None]
  - NAUSEA [None]
  - PYREXIA [None]
  - SEPSIS [None]
  - STRESS [None]
